FAERS Safety Report 5340181-9 (Version None)
Quarter: 2007Q2

REPORT INFORMATION
  Report Type: 
  Country: None (occurrence: None)
  Receive Date: 20070531
  Receipt Date: 20070525
  Transmission Date: 20071010
  Serious: Yes (Hospitalization)
  Sender: FDA-Public Use
  Company Number: B0466706A

PATIENT
  Age: 39 Year
  Sex: Female
  Weight: 75 kg

DRUGS (7)
  1. FLUTIDE [Suspect]
     Indication: ASTHMA
     Route: 055
     Dates: start: 20050930, end: 20060129
  2. SEREVENT [Concomitant]
     Indication: ASTHMA
     Dosage: 100MCG PER DAY
     Route: 055
  3. TEGRETOL [Concomitant]
     Indication: BIPOLAR I DISORDER
     Dosage: 450MG PER DAY
     Route: 048
  4. EURODIN [Concomitant]
     Indication: BIPOLAR I DISORDER
     Dosage: 4MG PER DAY
     Route: 048
  5. HYDROXYZINE PAMOATE [Concomitant]
     Indication: BIPOLAR I DISORDER
     Dosage: 25MG PER DAY
     Route: 048
  6. ISOMYTAL [Concomitant]
     Indication: BIPOLAR I DISORDER
     Dosage: .1G PER DAY
     Route: 048
  7. TAKEPRON [Concomitant]
     Dosage: 30MG PER DAY
     Route: 048

REACTIONS (5)
  - CANDIDIASIS [None]
  - COUGH [None]
  - EATING DISORDER [None]
  - OROPHARYNGITIS FUNGAL [None]
  - PHARYNGOLARYNGEAL PAIN [None]
